FAERS Safety Report 7812045-X (Version None)
Quarter: 2011Q4

REPORT INFORMATION
  Report Type: 
  Country: None (occurrence: None)
  Receive Date: 20111013
  Receipt Date: 20100610
  Transmission Date: 20120403
  Serious: Yes (Other)
  Sender: FDA-Public Use
  Company Number: US-JNJFOC-20110910415

PATIENT
  Sex: Female

DRUGS (2)
  1. CONCENTRATED TYLENOL INFANT DROPS [Suspect]
     Indication: PRODUCT USED FOR UNKNOWN INDICATION
     Route: 065
  2. CONCENTRATED TYLENOL INFANT DROPS [Suspect]
     Route: 065

REACTIONS (4)
  - ABNORMAL BEHAVIOUR [None]
  - TREMOR [None]
  - PRODUCT CONTAMINATION PHYSICAL [None]
  - BALANCE DISORDER [None]
